FAERS Safety Report 23739323 (Version 4)
Quarter: 2025Q1

REPORT INFORMATION
  Report Type: Spontaneous
  Country: US (occurrence: US)
  Receive Date: 20240413
  Receipt Date: 20250203
  Transmission Date: 20250409
  Serious: No
  Sender: DAIICHI
  Company Number: US-DAIICHI SANKYO, INC.-DSU-2024-116449AA

PATIENT
  Age: 67 Year
  Sex: Female

DRUGS (4)
  1. TURALIO [Suspect]
     Active Substance: PEXIDARTINIB HYDROCHLORIDE
     Indication: Product used for unknown indication
     Route: 065
     Dates: start: 20230629
  2. TURALIO [Suspect]
     Active Substance: PEXIDARTINIB HYDROCHLORIDE
     Dosage: 125 MG, BID (CAPSULE BY MOUTH TWICE DAILY)
     Route: 065
  3. TURALIO [Suspect]
     Active Substance: PEXIDARTINIB HYDROCHLORIDE
     Dosage: 125 MG (2 CAPSULES IN THE MORNING AND 1 CAPSULE IN THE EVENING EVERY OTHER DAY)
     Route: 048
     Dates: start: 20240715
  4. TURALIO [Suspect]
     Active Substance: PEXIDARTINIB HYDROCHLORIDE
     Dosage: 125 MG, BID (1 CAPSULE BY  MOUTH TWICE PER DAY)
     Route: 048
     Dates: start: 20250130

REACTIONS (4)
  - COVID-19 [Recovered/Resolved]
  - Therapy change [Not Recovered/Not Resolved]
  - Therapy change [Not Recovered/Not Resolved]
  - Off label use [Not Recovered/Not Resolved]

NARRATIVE: CASE EVENT DATE: 20240715
